FAERS Safety Report 23542478 (Version 1)
Quarter: 2024Q1

REPORT INFORMATION
  Report Type: Report from Study
  Country: US (occurrence: US)
  Receive Date: 20240220
  Receipt Date: 20240220
  Transmission Date: 20240410
  Serious: No
  Sender: FDA-Public Use
  Company Number: US-ACADIA PHARMACEUTICALS INC.-ACA-2024-PIM-000468

PATIENT
  Sex: Female

DRUGS (22)
  1. NUPLAZID [Suspect]
     Active Substance: PIMAVANSERIN TARTRATE
     Indication: Psychotic disorder
     Dosage: 34 MILLIGRAM, QD
     Route: 048
  2. NUPLAZID [Suspect]
     Active Substance: PIMAVANSERIN TARTRATE
     Indication: Delusion
  3. RYTARY [Concomitant]
     Active Substance: CARBIDOPA\LEVODOPA
  4. GEMTESA [Concomitant]
     Active Substance: VIBEGRON
  5. LOPERAMIDE [Concomitant]
     Active Substance: LOPERAMIDE
  6. BACLOFEN [Concomitant]
     Active Substance: BACLOFEN
  7. METOPROLOL TARTRATE [Concomitant]
     Active Substance: METOPROLOL TARTRATE
  8. ONDANSETRON [Concomitant]
     Active Substance: ONDANSETRON
  9. ACETAMINOPHEN AND CODEINE [Concomitant]
     Active Substance: ACETAMINOPHEN\CODEINE PHOSPHATE
  10. ASCORBIC ACID [Concomitant]
     Active Substance: ASCORBIC ACID
  11. CALCIUM CARBONATE [Concomitant]
     Active Substance: CALCIUM CARBONATE
  12. IBUPROFEN [Concomitant]
     Active Substance: IBUPROFEN
  13. VITAMIN D3 [Concomitant]
     Active Substance: CHOLECALCIFEROL
  14. CYCLOBENZAPRINE [Concomitant]
     Active Substance: CYCLOBENZAPRINE
  15. GABAPENTIN [Concomitant]
     Active Substance: GABAPENTIN
  16. SENOKOT [Concomitant]
     Active Substance: SENNOSIDES
  17. TOLTERODINE TARTRATE [Concomitant]
     Active Substance: TOLTERODINE TARTRATE
  18. MYRBETRIQ [Concomitant]
     Active Substance: MIRABEGRON
  19. ACETAMINOPHEN\HYDROCODONE [Concomitant]
     Active Substance: ACETAMINOPHEN\HYDROCODONE
  20. LORAZEPAM [Concomitant]
     Active Substance: LORAZEPAM
  21. CREON [Concomitant]
     Active Substance: PANCRELIPASE AMYLASE\PANCRELIPASE LIPASE\PANCRELIPASE PROTEASE
  22. CARBIDOPA LEVODOPA [Concomitant]
     Active Substance: CARBIDOPA\LEVODOPA

REACTIONS (2)
  - Gastrooesophageal reflux disease [Unknown]
  - Insomnia [Unknown]
